FAERS Safety Report 23062611 (Version 2)
Quarter: 2024Q1

REPORT INFORMATION
  Report Type: Report from Study
  Country: US (occurrence: US)
  Receive Date: 20231013
  Receipt Date: 20240111
  Transmission Date: 20240410
  Serious: No
  Sender: FDA-Public Use
  Company Number: US-002147023-NVSC2023US221004

PATIENT
  Sex: Female

DRUGS (1)
  1. ENTRESTO [Suspect]
     Active Substance: SACUBITRIL\VALSARTAN
     Indication: Cardiac failure
     Dosage: 24 MG, BID
     Route: 048
     Dates: start: 20231006

REACTIONS (5)
  - Fatigue [Unknown]
  - COVID-19 [Unknown]
  - Cough [Unknown]
  - Dry throat [Unknown]
  - Musculoskeletal pain [Unknown]
